FAERS Safety Report 24835262 (Version 3)
Quarter: 2025Q3

REPORT INFORMATION
  Report Type: Spontaneous
  Country: US (occurrence: US)
  Receive Date: 20250113
  Receipt Date: 20250711
  Transmission Date: 20251021
  Serious: Yes (Hospitalization, Other)
  Sender: SHENZHEN TECHDOW PHARMACEUTICAL
  Company Number: US-Techdow-2024Techdow000241

PATIENT
  Age: 33 Year
  Sex: Female
  Weight: 77.56 kg

DRUGS (1)
  1. ENOXAPARIN SODIUM [Suspect]
     Active Substance: ENOXAPARIN SODIUM
     Indication: Thrombosis prophylaxis
     Dates: start: 20241207, end: 20241207

REACTIONS (3)
  - Intra-abdominal haematoma [Recovered/Resolved]
  - Haemorrhage [Recovered/Resolved]
  - Product quality issue [Unknown]

NARRATIVE: CASE EVENT DATE: 20241207
